FAERS Safety Report 9237433 (Version 2)
Quarter: 2013Q2

REPORT INFORMATION
  Report Type: Spontaneous
  Country: US (occurrence: US)
  Receive Date: 20130417
  Receipt Date: 20130517
  Transmission Date: 20140414
  Serious: No
  Sender: FDA-Public Use
  Company Number: US-PFIZER INC-2013115742

PATIENT
  Age: 69 Year
  Sex: Female
  Weight: 64.85 kg

DRUGS (8)
  1. MELOXICAM [Suspect]
     Indication: ARTHRITIS
     Dosage: 7.5 MG, SINGLE
     Dates: start: 201304, end: 201304
  2. LIPITOR [Concomitant]
     Dosage: 10 MG, 1X/DAY
  3. SYNTHROID [Concomitant]
     Dosage: 50 UG, 1X/DAY
  4. OMEPRAZOLE [Concomitant]
     Dosage: 40 MG, 1X/DAY
  5. ESTROGENS [Concomitant]
     Dosage: 0.5 MG, 1X/DAY
  6. ALBUTEROL [Concomitant]
     Indication: ASTHMA
     Dosage: UNK, AS NEEDED
  7. SINGULAIR [Concomitant]
     Indication: ASTHMA
     Dosage: UNK, AS NEEDED
  8. ADVAIR [Concomitant]
     Indication: ASTHMA
     Dosage: UNK, AS NEEDED

REACTIONS (2)
  - Fistula [Recovered/Resolved]
  - Blister [Recovered/Resolved]
